FAERS Safety Report 16135126 (Version 2)
Quarter: 2019Q3

REPORT INFORMATION
  Report Type: Report from Study
  Country: US (occurrence: US)
  Receive Date: 20190329
  Receipt Date: 20190723
  Transmission Date: 20191004
  Serious: Yes (Hospitalization)
  Sender: FDA-Public Use
  Company Number: US-TESARO-2019-TSO01383-US

PATIENT
  Sex: Female

DRUGS (1)
  1. VARUBI [Suspect]
     Active Substance: ROLAPITANT
     Indication: PRODUCT USED FOR UNKNOWN INDICATION
     Dosage: 180 MG, EVERY 3 WEEKS
     Route: 065
     Dates: start: 20190215

REACTIONS (2)
  - Infection [Unknown]
  - Disease progression [Unknown]
